FAERS Safety Report 24537904 (Version 1)
Quarter: 2024Q4

REPORT INFORMATION
  Report Type: Spontaneous
  Country: PT (occurrence: PT)
  Receive Date: 20241023
  Receipt Date: 20241023
  Transmission Date: 20250115
  Serious: Yes (Hospitalization, Disabling, Other)
  Sender: SANDOZ
  Company Number: PT-NOVPHSZ-PHHY2019PT171050

PATIENT
  Age: 50 Year

DRUGS (15)
  1. BOSENTAN [Suspect]
     Active Substance: BOSENTAN
     Indication: Overlap syndrome
     Dosage: UNK
     Route: 048
  2. BOSENTAN [Suspect]
     Active Substance: BOSENTAN
     Indication: Vasodilatation
  3. NITROGLYCERIN [Suspect]
     Active Substance: NITROGLYCERIN
     Indication: Vasodilatation
     Dosage: UNK
     Route: 065
  4. ILOPROST [Suspect]
     Active Substance: ILOPROST
     Indication: Pulmonary arterial hypertension
     Dosage: 1 DF (1 UG/L), QMO
     Route: 042
  5. ILOPROST [Suspect]
     Active Substance: ILOPROST
     Indication: Vasodilatation
  6. NIFEDIPINE [Suspect]
     Active Substance: NIFEDIPINE
     Indication: Vasodilatation
     Dosage: UNK
     Route: 065
  7. PENTOXIFYLLINE [Suspect]
     Active Substance: PENTOXIFYLLINE
     Indication: Vasodilatation
     Dosage: UNK
     Route: 065
  8. SILDENAFIL [Suspect]
     Active Substance: SILDENAFIL
     Indication: Vasodilatation
     Route: 065
  9. SILDENAFIL [Suspect]
     Active Substance: SILDENAFIL
     Indication: Pulmonary arterial hypertension
  10. VENTAVIS [Suspect]
     Active Substance: ILOPROST
     Indication: Vasodilatation
     Dosage: 1 DF, QMO
     Route: 055
  11. VENTAVIS [Suspect]
     Active Substance: ILOPROST
     Indication: Pulmonary fibrosis
  12. AZATHIOPRINE [Concomitant]
     Active Substance: AZATHIOPRINE
     Indication: Product used for unknown indication
     Dosage: UNK
     Route: 065
  13. CYCLOPHOSPHAMIDE [Concomitant]
     Active Substance: CYCLOPHOSPHAMIDE
     Indication: Product used for unknown indication
     Dosage: UNK
     Route: 065
  14. METHYLPREDNISOLONE [Concomitant]
     Active Substance: METHYLPREDNISOLONE
     Indication: Product used for unknown indication
     Dosage: UNK
     Route: 065
  15. PREDNISOLONE [Concomitant]
     Active Substance: PREDNISOLONE
     Indication: Product used for unknown indication
     Dosage: 1 MG/KG, QD
     Route: 065

REACTIONS (7)
  - Nervous system disorder [Unknown]
  - Haematotoxicity [Unknown]
  - Sepsis [Unknown]
  - Pneumonia [Unknown]
  - Respiratory disorder [Unknown]
  - Extremity necrosis [Unknown]
  - Drug ineffective for unapproved indication [Unknown]
